FAERS Safety Report 14871734 (Version 1)
Quarter: 2018Q2

REPORT INFORMATION
  Report Type: Report from Study
  Country: GB (occurrence: GB)
  Receive Date: 20180509
  Receipt Date: 20180509
  Transmission Date: 20180711
  Serious: Yes (Other)
  Sender: FDA-Public Use
  Company Number: GB-JNJFOC-20180503761

PATIENT
  Age: 67 Year
  Sex: Female
  Weight: 70.8 kg

DRUGS (3)
  1. FELODIPINE. [Concomitant]
     Active Substance: FELODIPINE
     Route: 065
     Dates: start: 20090701
  2. PRAVASTATIN. [Concomitant]
     Active Substance: PRAVASTATIN
     Route: 065
     Dates: start: 20090701
  3. STELARA [Suspect]
     Active Substance: USTEKINUMAB
     Indication: PSORIASIS
     Route: 058
     Dates: start: 20110125

REACTIONS (1)
  - Bowen^s disease [Not Recovered/Not Resolved]

NARRATIVE: CASE EVENT DATE: 20180410
